FAERS Safety Report 7547810-X (Version None)
Quarter: 2011Q2

REPORT INFORMATION
  Report Type: 
  Country: None (occurrence: None)
  Receive Date: 20110615
  Receipt Date: 20110603
  Transmission Date: 20111010
  Serious: Yes (Hospitalization)
  Sender: FDA-Public Use
  Company Number: US-BIOGENIDEC-2011BI014066

PATIENT
  Age: 45 Year
  Sex: Female

DRUGS (11)
  1. GABAPENTIN [Concomitant]
     Route: 048
  2. TERBINAFINE HCL [Concomitant]
  3. BETHANECHOL [Concomitant]
     Route: 048
  4. IBUPROFEN [Concomitant]
     Indication: PAIN
  5. LISINOPRIL [Concomitant]
     Route: 048
  6. LORATADINE [Concomitant]
     Route: 048
  7. EPIPEN [Concomitant]
  8. TRAMADOL HCL [Concomitant]
     Route: 048
  9. ZOFRAN [Concomitant]
     Indication: PREMEDICATION
  10. TYSABRI [Suspect]
     Indication: MULTIPLE SCLEROSIS
     Route: 042
     Dates: start: 20080320
  11. OMEPRAZOLE [Concomitant]
     Route: 048

REACTIONS (4)
  - ANAEMIA [None]
  - LUNG DISORDER [None]
  - UHTHOFF'S PHENOMENON [None]
  - MALNUTRITION [None]
